FAERS Safety Report 4695379-X (Version None)
Quarter: 2005Q2

REPORT INFORMATION
  Report Type: 
  Country: None (occurrence: None)
  Receive Date: 20050311
  Receipt Date: 20050311
  Transmission Date: 20051028
  Serious: No
  Sender: FDA-Public Use
  Company Number: None

PATIENT
  Age: 41 Year
  Sex: Female

DRUGS (3)
  1. WELLBUTRIN SR GENERIC 180MG [Suspect]
     Indication: DEPRESSION
     Dosage: 1 AM
     Dates: start: 20030701, end: 20031201
  2. WELLBUTRIN SR GENERIC 180MG [Suspect]
     Indication: MIGRAINE
     Dosage: 1 AM
     Dates: start: 20030701, end: 20031201
  3. PROZAC [Concomitant]

REACTIONS (3)
  - DISEASE RECURRENCE [None]
  - MIGRAINE [None]
  - THERAPEUTIC RESPONSE UNEXPECTED WITH DRUG SUBSTITUTION [None]
